FAERS Safety Report 18961896 (Version 2)
Quarter: 2021Q1

REPORT INFORMATION
  Report Type: Spontaneous
  Country: CH (occurrence: CH)
  Receive Date: 20210303
  Receipt Date: 20210305
  Transmission Date: 20210420
  Serious: Yes (Other)
  Sender: FDA-Public Use
  Company Number: CH-TEVA-2020-CH-1961294

PATIENT
  Age: 75 Year
  Sex: Female

DRUGS (18)
  1. OBRACIN [Suspect]
     Active Substance: TOBRAMYCIN
     Indication: ANTIBIOTIC PROPHYLAXIS
     Dosage: 80MG / 2ML INTRAVENOUS ADMINISTRATION 160MG ON JANUARY 18TH, 2021, 120MG ON 19?JAN AND 20?JAN, 2021
     Route: 040
     Dates: start: 20210119, end: 20210120
  2. CALCIMAGONA D3 [Concomitant]
     Active Substance: CALCIUM CARBONATE\CHOLECALCIFEROL
     Dosage: 500 MG / 800 U LEMON (CALCIUM, IONIZED, COLECALCIFEROL (VIT D3) P.O. PC. 1 0 0 0
     Route: 048
  3. CIMIFEMIN [Concomitant]
     Active Substance: BLACK COHOSH
     Dosage: 13 MG PO PCS 1 0 0 0
     Route: 048
  4. CRESTASTATIN [Concomitant]
     Active Substance: ROSUVASTATIN CALCIUM
     Dosage: FILM TAB 5 MG (ROSUVASTATIN) PO PCS 1 0 0 0
     Route: 048
  5. NEXIUM [Concomitant]
     Active Substance: ESOMEPRAZOLE MAGNESIUM
     Dosage: 40MG I.V. DRY MATTER 18.01.?24.01.2021
     Route: 040
     Dates: start: 20210118, end: 20210121
  6. HEPARIN [Suspect]
     Active Substance: HEPARIN SODIUM
     Indication: THROMBOSIS PROPHYLAXIS
     Dosage: 20000E / 48ML AT THE PERFUSOR (VARIABLE) JANUARY 18?23, 2021
     Dates: start: 20210118, end: 20210123
  7. ROCEPHIN [Suspect]
     Active Substance: CEFTRIAXONE SODIUM
     Indication: ANTIBIOTIC PROPHYLAXIS
     Dosage: 2G INTRAVENOUS ADMINISTRATION 1X / DAY
     Route: 040
     Dates: start: 20210119, end: 20210120
  8. LAXOBERON [Concomitant]
     Active Substance: SODIUM PICOSULFATE
     Dosage: P.O. TRPF 20 TRPF
     Route: 048
  9. MAGNESIUMSULFAT BICHSEL [Concomitant]
     Active Substance: MAGNESIUM SULFATE
     Dosage: (MAGNESIUM SULFATE) 50% SOL. 2G I.V. ON JANUARY 19TH, 2021
     Route: 040
     Dates: start: 20210119, end: 20210119
  10. ATROVENT [Concomitant]
     Active Substance: IPRATROPIUM BROMIDE
     Dosage: INHALATION SOLUTION 0.25MG / 2ML 3X / D INHALATION
     Route: 055
  11. CO?AMOXI [Suspect]
     Active Substance: AMOXICILLIN\CLAVULANATE POTASSIUM
     Indication: ANTIBIOTIC PROPHYLAXIS
     Dosage: 1.2G INTRAVENOUS ADMINISTRATION TWICE A DAY
     Route: 040
     Dates: start: 20210118, end: 20210119
  12. OBRACIN [Suspect]
     Active Substance: TOBRAMYCIN
     Indication: ANTIBIOTIC PROPHYLAXIS
     Dosage: 80MG / 2ML INTRAVENOUS ADMINISTRATION 160MG ON 18?01? 2021, 120MG ON JANUARY 19?01?2021 AND 20?01?20
     Route: 040
     Dates: start: 20210118, end: 20210118
  13. METRONIDAZOLE BIOREN [Suspect]
     Active Substance: METRONIDAZOLE
     Indication: ANTIBIOTIC PROPHYLAXIS
     Dosage: (METRONIDAZOLE) 500MG INTRAVENOUS ADMINISTRATION 2X / D FROM JANUARY 18, 2021 ? JANUARY 20, 2021
     Route: 040
     Dates: start: 20210118, end: 20210120
  14. CONCOR [Concomitant]
     Active Substance: BISOPROLOL FUMARATE
     Dosage: 5 MG (BISOPROLOL) PO PCS 1 0 0 0
     Route: 048
  15. ALBUMIN CSL [Concomitant]
     Active Substance: ALBUMIN HUMAN
     Dosage: INF. SOLUTION 20% 100ML 200ML / D 18.?21.01.2021
     Route: 040
     Dates: start: 20210118, end: 20210121
  16. APROVEL [Concomitant]
     Active Substance: IRBESARTAN
     Dosage: 150 MG (IRBESARTAN) PO PCS 1 0 0 0
     Route: 048
  17. NATRIUMHYDROGENCARBONAT INSEL [Concomitant]
     Dosage: CAPS 1^000 MG (SODIUM HYDROGEN CARBONATE) P.O. PC 1 0 1 0
     Route: 048
  18. NORADRENALINE [Concomitant]
     Active Substance: NOREPINEPHRINE
     Dosage: INF.CONC. 1MG / ML AT THE PERFUSOR 18.01.?22.01.2021 (VARIABLE)
     Route: 041
     Dates: start: 20210118, end: 20210122

REACTIONS (1)
  - Drug reaction with eosinophilia and systemic symptoms [Not Recovered/Not Resolved]

NARRATIVE: CASE EVENT DATE: 20210118
